FAERS Safety Report 15019310 (Version 3)
Quarter: 2018Q3

REPORT INFORMATION
  Report Type: Spontaneous
  Country: US (occurrence: US)
  Receive Date: 20180617
  Receipt Date: 20180702
  Transmission Date: 20181010
  Serious: Yes (Hospitalization, Other)
  Sender: FDA-Public Use
  Company Number: US-JNJFOC-20180605209

PATIENT
  Age: 63 Year
  Sex: Female

DRUGS (1)
  1. IMBRUVICA [Suspect]
     Active Substance: IBRUTINIB
     Indication: CHRONIC LYMPHOCYTIC LEUKAEMIA
     Route: 048
     Dates: start: 20171106, end: 20180604

REACTIONS (3)
  - Hypoinsulinaemia postoperative [Unknown]
  - Adenocarcinoma pancreas [Unknown]
  - Procedural pain [Unknown]

NARRATIVE: CASE EVENT DATE: 20180501
